FAERS Safety Report 9295710 (Version 2)
Quarter: 2013Q2

REPORT INFORMATION
  Report Type: Report from Study
  Country: BR (occurrence: BR)
  Receive Date: 20130517
  Receipt Date: 20130621
  Transmission Date: 20140414
  Serious: Yes (Hospitalization, Other)
  Sender: FDA-Public Use
  Company Number: PHHY2013BR048545

PATIENT
  Sex: Male

DRUGS (3)
  1. FORASEQ [Suspect]
     Indication: DYSPNOEA
     Dosage: 1 DF, Q8H (1DF IN THE MORNING, 1DF AT MIDDDAY, 1DF AT NIGHT)
  2. ONBREZ [Suspect]
     Dosage: 1 DF, UNK (AFTER LUNCH)
  3. ONBREZ [Suspect]
     Dosage: UNK UKN, UNK

REACTIONS (2)
  - Pneumonia [Recovered/Resolved]
  - Dyspnoea [Recovered/Resolved]
